FAERS Safety Report 12753406 (Version 2)
Quarter: 2017Q3

REPORT INFORMATION
  Report Type: Spontaneous
  Country: US (occurrence: US)
  Receive Date: 20160915
  Receipt Date: 20170914
  Transmission Date: 20171127
  Serious: Yes (Hospitalization, Other)
  Sender: FDA-Public Use
  Company Number: US-ASTELLAS-2015US041797

PATIENT
  Age: 74 Year
  Sex: Male

DRUGS (3)
  1. TYLENOL [Concomitant]
     Active Substance: ACETAMINOPHEN
     Indication: PRODUCT USED FOR UNKNOWN INDICATION
     Dosage: UNK UNK, UNKNOWN FREQ.
     Route: 065
  2. XTANDI [Suspect]
     Active Substance: ENZALUTAMIDE
     Indication: PROSTATE CANCER
     Route: 048
     Dates: start: 20151027
  3. CLARITIN [Concomitant]
     Active Substance: LORATADINE
     Indication: PRODUCT USED FOR UNKNOWN INDICATION
     Dosage: UNK UNK, UNKNOWN FREQ.
     Route: 065

REACTIONS (17)
  - Back pain [Not Recovered/Not Resolved]
  - Diarrhoea [Recovered/Resolved]
  - Headache [Not Recovered/Not Resolved]
  - Headache [Not Recovered/Not Resolved]
  - Drug dose omission [Unknown]
  - Muscular weakness [Unknown]
  - Vomiting [Recovered/Resolved]
  - Disturbance in attention [Not Recovered/Not Resolved]
  - Fall [Not Recovered/Not Resolved]
  - Back injury [Not Recovered/Not Resolved]
  - Muscle atrophy [Not Recovered/Not Resolved]
  - Pain in extremity [Unknown]
  - Pain in extremity [Not Recovered/Not Resolved]
  - Headache [Recovered/Resolved]
  - Fracture [Not Recovered/Not Resolved]
  - Insomnia [Recovered/Resolved]
  - Rash [Recovered/Resolved]

NARRATIVE: CASE EVENT DATE: 20151106
